FAERS Safety Report 6110728-3 (Version None)
Quarter: 2009Q1

REPORT INFORMATION
  Report Type: 
  Country: None (occurrence: None)
  Receive Date: 20090227
  Receipt Date: 20090213
  Transmission Date: 20090719
  Serious: Yes (Hospitalization)
  Sender: FDA-Public Use
  Company Number: IR-IGSA-IG546

PATIENT
  Age: 65 Year
  Sex: Female

DRUGS (2)
  1. FLEBOGAMMA [Suspect]
     Indication: LYMPHOCYTIC LEUKAEMIA
     Dosage: 10G IV
     Route: 042
     Dates: start: 20080507, end: 20080611
  2. OCTAPLAS (A738C9501) [Suspect]
     Indication: LYMPHOCYTIC LEUKAEMIA
     Dosage: 4 UNITS IV
     Route: 042
     Dates: start: 20080507, end: 20080611

REACTIONS (1)
  - HEPATITIS B [None]
